FAERS Safety Report 13353458 (Version 6)
Quarter: 2017Q2

REPORT INFORMATION
  Report Type: Spontaneous
  Country: DE (occurrence: DE)
  Receive Date: 20170321
  Receipt Date: 20170525
  Transmission Date: 20170830
  Serious: Yes (Life-Threatening, Hospitalization, Other)
  Sender: FDA-Public Use
  Company Number: DE-AMGEN-DEUSP2017040473

PATIENT
  Sex: Male
  Weight: 66 kg

DRUGS (4)
  1. DEXAMETHASONE. [Concomitant]
     Active Substance: DEXAMETHASONE
     Dosage: 20 MG, QWK
     Dates: start: 201611
  2. KYPROLIS [Suspect]
     Active Substance: CARFILZOMIB
     Dosage: UNK
     Route: 042
     Dates: start: 2017
  3. REVLIMID [Concomitant]
     Active Substance: LENALIDOMIDE
     Dosage: 10 MG, SEVEN DAYS IN EVERY TWENTY ONE DAYS
     Dates: start: 200911, end: 201702
  4. KYPROLIS [Suspect]
     Active Substance: CARFILZOMIB
     Indication: PLASMA CELL MYELOMA
     Dosage: 36 MG, UNK
     Route: 042
     Dates: start: 20160121

REACTIONS (9)
  - Coagulopathy [Unknown]
  - Brain injury [Recovered/Resolved]
  - Hypoglycaemia [Recovering/Resolving]
  - Hepatitis [Unknown]
  - Impaired driving ability [Unknown]
  - Reactive psychosis [Recovering/Resolving]
  - Apraxia [Recovering/Resolving]
  - Abasia [Recovering/Resolving]
  - Aplasia [Recovering/Resolving]

NARRATIVE: CASE EVENT DATE: 2017
